FAERS Safety Report 23897349 (Version 4)
Quarter: 2025Q1

REPORT INFORMATION
  Report Type: Spontaneous
  Country: US (occurrence: US)
  Receive Date: 20240524
  Receipt Date: 20250219
  Transmission Date: 20250409
  Serious: Yes (Life-Threatening, Other)
  Sender: PFIZER
  Company Number: US-PFIZER INC-202400174933

PATIENT
  Age: 60 Year
  Sex: Female
  Weight: 90.7 kg

DRUGS (11)
  1. IBRANCE [Suspect]
     Active Substance: PALBOCICLIB
     Indication: Breast cancer female
     Route: 048
     Dates: start: 20240429
  2. IBRANCE [Suspect]
     Active Substance: PALBOCICLIB
     Dates: end: 20240701
  3. IBRANCE [Suspect]
     Active Substance: PALBOCICLIB
     Dates: start: 20240723
  4. IBRANCE [Suspect]
     Active Substance: PALBOCICLIB
     Dates: end: 202408
  5. IBRANCE [Suspect]
     Active Substance: PALBOCICLIB
     Dates: start: 202408
  6. IBRANCE [Suspect]
     Active Substance: PALBOCICLIB
     Dates: start: 20240903
  7. IBRANCE [Suspect]
     Active Substance: PALBOCICLIB
     Dates: end: 20241009
  8. IBRANCE [Suspect]
     Active Substance: PALBOCICLIB
     Dates: start: 20241104
  9. IBRANCE [Suspect]
     Active Substance: PALBOCICLIB
     Dates: end: 20241206
  10. IBRANCE [Suspect]
     Active Substance: PALBOCICLIB
     Dates: end: 20241219
  11. IBRANCE [Suspect]
     Active Substance: PALBOCICLIB
     Dates: end: 20250113

REACTIONS (14)
  - Pneumonitis [Recovering/Resolving]
  - Full blood count abnormal [Recovering/Resolving]
  - Dyspnoea exertional [Recovering/Resolving]
  - Dyspnoea [Recovering/Resolving]
  - Lung disorder [Recovering/Resolving]
  - Pneumonia [Recovered/Resolved]
  - Musculoskeletal chest pain [Recovering/Resolving]
  - Fatigue [Recovering/Resolving]
  - Neutrophil count decreased [Recovered/Resolved]
  - Musculoskeletal pain [Unknown]
  - Muscular weakness [Unknown]
  - Arthralgia [Unknown]
  - Tendon rupture [Unknown]
  - Bradycardia [Unknown]

NARRATIVE: CASE EVENT DATE: 20240101
